FAERS Safety Report 23895647 (Version 1)
Quarter: 2024Q2

REPORT INFORMATION
  Report Type: Spontaneous
  Country: CA (occurrence: CA)
  Receive Date: 20240524
  Receipt Date: 20240524
  Transmission Date: 20240716
  Serious: Yes (Other)
  Sender: FDA-Public Use
  Company Number: None

PATIENT
  Age: 43 Year
  Sex: Female

DRUGS (7)
  1. METHOTREXATE [Suspect]
     Active Substance: METHOTREXATE
     Indication: Granulomatosis with polyangiitis
     Route: 058
  2. CLOTRIMAZOLE [Concomitant]
     Active Substance: CLOTRIMAZOLE
     Dosage: AS REQUIRED
  3. LEVOTHYROXINE [Concomitant]
     Active Substance: LEVOTHYROXINE\LEVOTHYROXINE SODIUM
  4. EPIPEN [Concomitant]
     Active Substance: EPINEPHRINE
     Dosage: AS REQUIRED
  5. FOLIC ACID [Concomitant]
     Active Substance: FOLIC ACID
  6. METROGEL [Concomitant]
     Active Substance: METRONIDAZOLE
     Dosage: EVERY 1 DAYS
  7. RITUXIMAB [Concomitant]
     Active Substance: RITUXIMAB
     Indication: Granulomatosis with polyangiitis
     Route: 042

REACTIONS (4)
  - C-reactive protein increased [Unknown]
  - Laryngeal stenosis [Unknown]
  - Nausea [Unknown]
  - Off label use [Unknown]
